FAERS Safety Report 10881279 (Version 4)
Quarter: 2016Q2

REPORT INFORMATION
  Report Type: Spontaneous
  Country: US (occurrence: US)
  Receive Date: 20150303
  Receipt Date: 20160405
  Transmission Date: 20160815
  Serious: Yes (Other)
  Sender: FDA-Public Use
  Company Number: US-PFIZER INC-2015075972

PATIENT
  Age: 82 Year
  Sex: Female

DRUGS (10)
  1. LYRICA [Suspect]
     Active Substance: PREGABALIN
     Dosage: 75 MG, 3X/DAY
     Route: 048
     Dates: start: 20160308
  2. ZYLOPRIM [Concomitant]
     Active Substance: ALLOPURINOL
     Dosage: UNK
  3. TIMOPTIC [Concomitant]
     Active Substance: TIMOLOL MALEATE
     Dosage: UNK
  4. MONOPRIL [Concomitant]
     Active Substance: FOSINOPRIL SODIUM
     Dosage: UNK
  5. FISH OIL [Concomitant]
     Active Substance: FISH OIL
     Dosage: UNK
     Route: 048
  6. MOTRIN [Concomitant]
     Active Substance: IBUPROFEN
     Dosage: UNK
  7. MAXZIDE [Concomitant]
     Active Substance: HYDROCHLOROTHIAZIDE\TRIAMTERENE
     Dosage: UNK
  8. LYRICA [Suspect]
     Active Substance: PREGABALIN
     Dosage: UNK
  9. TYLENOL ARTHRITIS PAIN [Concomitant]
     Active Substance: ACETAMINOPHEN
     Dosage: UNK
  10. ARIMIDEX [Concomitant]
     Active Substance: ANASTROZOLE
     Dosage: UNK

REACTIONS (16)
  - Subarachnoid haemorrhage [Unknown]
  - Essential hypertension [Unknown]
  - Osteoarthritis [Unknown]
  - Loss of consciousness [Unknown]
  - Musculoskeletal chest pain [Unknown]
  - Road traffic accident [Unknown]
  - Invasive ductal breast carcinoma [Unknown]
  - Glaucoma [Unknown]
  - Skin abrasion [Unknown]
  - Head injury [Unknown]
  - Arthropathy [Unknown]
  - Joint swelling [Unknown]
  - Rib fracture [Unknown]
  - Pain in extremity [Unknown]
  - Diabetic complication [Unknown]
  - Gait disturbance [Unknown]
